FAERS Safety Report 9578171 (Version 1)
Quarter: 2013Q4

REPORT INFORMATION
  Report Type: Spontaneous
  Country: US (occurrence: US)
  Receive Date: 20131001
  Receipt Date: 20131001
  Transmission Date: 20140711
  Serious: No
  Sender: FDA-Public Use
  Company Number: US-AMGEN-USASP2013011936

PATIENT
  Sex: Female
  Weight: 77.1 kg

DRUGS (10)
  1. ENBREL [Suspect]
     Indication: RHEUMATOID ARTHRITIS
     Dosage: 50 MG, QWK
     Route: 058
  2. BUFFERIN                           /00002701/ [Concomitant]
     Dosage: 325 MG, UNK
  3. METHOTREXATE [Concomitant]
     Dosage: 2.5 MG, UNK
  4. ATENOLOL [Concomitant]
     Dosage: 50 MG, UNK
  5. LEVOTHYROXIN [Concomitant]
     Dosage: 100 MUG, UNK
  6. LEUCOVORIN CA [Concomitant]
     Dosage: 10 MG, UNK
  7. MULTIVITAMINS, PLAIN [Concomitant]
     Dosage: UNK
  8. VITAMIN D                          /00107901/ [Concomitant]
     Dosage: 1000 UNIT
  9. PREDNISONE [Concomitant]
     Dosage: 01 MG, UNK
  10. CALCIUM [Concomitant]
     Dosage: 750 MG, UNK

REACTIONS (1)
  - Therapeutic response decreased [Unknown]
